FAERS Safety Report 19402968 (Version 2)
Quarter: 2021Q2

REPORT INFORMATION
  Report Type: Spontaneous
  Country: GB (occurrence: GB)
  Receive Date: 20210611
  Receipt Date: 20210614
  Transmission Date: 20210717
  Serious: Yes (Death)
  Sender: FDA-Public Use
  Company Number: GB-BEH-2021132572

PATIENT
  Age: 42 Year
  Sex: Female

DRUGS (3)
  1. HUMAN IMMUNOGLOBULIN (INN) [Suspect]
     Active Substance: HUMAN IMMUNOGLOBULIN G
     Indication: PRODUCT USED FOR UNKNOWN INDICATION
     Dosage: UNK
     Route: 065
     Dates: start: 20210226
  2. MICROGYNON [ETHINYLESTRADIOL;LEVONORGESTREL] [Concomitant]
     Active Substance: ETHINYL ESTRADIOL\LEVONORGESTREL
     Indication: ORAL CONTRACEPTION
     Dosage: UNK
     Route: 048
     Dates: start: 20210518
  3. AMITRIPTYLINE [Concomitant]
     Active Substance: AMITRIPTYLINE
     Dosage: UNK
     Route: 065
     Dates: start: 20210226

REACTIONS (12)
  - Dyspnoea [Fatal]
  - Agitation [Fatal]
  - Multiple organ dysfunction syndrome [Fatal]
  - Poor peripheral circulation [Fatal]
  - Cardiac arrest [Fatal]
  - Activated partial thromboplastin time prolonged [Fatal]
  - Lymphocytosis [Fatal]
  - Thrombocytopenia [Fatal]
  - Pulmonary embolism [Fatal]
  - Confusional state [Fatal]
  - Subarachnoid haemorrhage [Fatal]
  - Pulseless electrical activity [Fatal]

NARRATIVE: CASE EVENT DATE: 20210530
